FAERS Safety Report 10530274 (Version 1)
Quarter: 2014Q4

REPORT INFORMATION
  Report Type: Spontaneous
  Country: US (occurrence: None)
  Receive Date: 20141020
  Receipt Date: 20141020
  Transmission Date: 20150528
  Serious: Yes (Hospitalization)
  Sender: FDA-Public Use
  Company Number: None

PATIENT
  Age: 73 Year
  Sex: Male
  Weight: 107.5 kg

DRUGS (2)
  1. ULORIC [Suspect]
     Active Substance: FEBUXOSTAT
     Indication: GOUT
     Dosage: 1 TAB
  2. LORCASERIN/OR PLACEBO [Concomitant]

REACTIONS (7)
  - Hydrocephalus [None]
  - Atrial fibrillation [None]
  - Memory impairment [None]
  - Muscle disorder [None]
  - Aggression [None]
  - Muscular weakness [None]
  - Tremor [None]

NARRATIVE: CASE EVENT DATE: 20141005
